FAERS Safety Report 17546941 (Version 1)
Quarter: 2020Q1

REPORT INFORMATION
  Report Type: Spontaneous
  Country: DE (occurrence: DE)
  Receive Date: 20200316
  Receipt Date: 20200316
  Transmission Date: 20200409
  Serious: Yes (Other)
  Sender: FDA-Public Use
  Company Number: DE-BAYER-2020-039818

PATIENT
  Age: 28 Year
  Sex: Female
  Weight: 75 kg

DRUGS (1)
  1. KYLEENA [Suspect]
     Active Substance: LEVONORGESTREL
     Indication: CONTRACEPTION
     Dosage: 17.5 ?G PER DAY CONTINUOUSLY
     Route: 015
     Dates: start: 20180917, end: 20191021

REACTIONS (7)
  - Panic attack [Recovering/Resolving]
  - Somnolence [Recovering/Resolving]
  - Arrhythmia [Recovering/Resolving]
  - Extrasystoles [Recovering/Resolving]
  - Premenstrual syndrome [Recovering/Resolving]
  - Loss of libido [Recovering/Resolving]
  - Dyspnoea [Recovering/Resolving]

NARRATIVE: CASE EVENT DATE: 20190911
